FAERS Safety Report 12856726 (Version 1)
Quarter: 2016Q4

REPORT INFORMATION
  Report Type: Spontaneous
  Country: US (occurrence: US)
  Receive Date: 20161018
  Receipt Date: 20161018
  Transmission Date: 20170207
  Serious: No
  Sender: FDA-Public Use
  Company Number: None

PATIENT
  Age: 67 Year
  Sex: Female
  Weight: 90.8 kg

DRUGS (4)
  1. LIPITOR [Suspect]
     Active Substance: ATORVASTATIN CALCIUM
     Indication: BLOOD TRIGLYCERIDES ABNORMAL
     Dosage: ?          QUANTITY:| / MB 0?NIX/Y;?
     Route: 048
     Dates: start: 20160916, end: 20160927
  2. FISH OIL [Concomitant]
     Active Substance: FISH OIL
  3. LEVOTHRYOID [Concomitant]
  4. LIPITOR [Suspect]
     Active Substance: ATORVASTATIN CALCIUM
     Indication: GLUCOSE TOLERANCE IMPAIRED
     Dosage: ?          QUANTITY:| / MB 0?NIX/Y;?
     Route: 048
     Dates: start: 20160916, end: 20160927

REACTIONS (2)
  - Insomnia [None]
  - Cough [None]

NARRATIVE: CASE EVENT DATE: 20160918
